FAERS Safety Report 23595045 (Version 2)
Quarter: 2025Q4

REPORT INFORMATION
  Report Type: Spontaneous
  Country: EU (occurrence: EU)
  Receive Date: 20240305
  Receipt Date: 20251209
  Transmission Date: 20260118
  Serious: Yes (Death, Hospitalization, Other)
  Sender: RANBAXY
  Company Number: EU-RANBAXY-2014R1-83940

PATIENT
  Age: 64 Year
  Sex: Male

DRUGS (10)
  1. LEVETIRACETAM [Suspect]
     Active Substance: LEVETIRACETAM
     Indication: Partial seizures
     Dosage: 3000 MILLIGRAM, DAILY
     Route: 065
  2. LEVETIRACETAM [Suspect]
     Active Substance: LEVETIRACETAM
     Indication: Partial seizures with secondary generalisation
  3. PREGABALIN [Suspect]
     Active Substance: PREGABALIN
     Indication: Partial seizures
     Dosage: UP TO 150 MG BID
     Route: 065
  4. PREGABALIN [Suspect]
     Active Substance: PREGABALIN
     Indication: Partial seizures
     Dosage: 300 MILLIGRAM, DAILY
     Route: 065
  5. LACOSAMIDE [Suspect]
     Active Substance: LACOSAMIDE
     Indication: Partial seizures
     Dosage: 200 MG, SINGLE
     Route: 048
  6. LACOSAMIDE [Suspect]
     Active Substance: LACOSAMIDE
     Dosage: 100 MG, BID
     Route: 048
  7. LACOSAMIDE [Suspect]
     Active Substance: LACOSAMIDE
     Dosage: 200 MILLIGRAM, DAILY
     Route: 048
  8. LACOSAMIDE [Suspect]
     Active Substance: LACOSAMIDE
     Dosage: 400 MILLIGRAM, DAILY
     Route: 048
  9. PHENOBARBITAL [Suspect]
     Active Substance: PHENOBARBITAL
     Indication: Partial seizures
     Dosage: 50 MILLIGRAM, DAILY
     Route: 065
  10. PHENOBARBITAL [Suspect]
     Active Substance: PHENOBARBITAL
     Indication: Partial seizures

REACTIONS (17)
  - Stupor [Fatal]
  - Mental status changes [Fatal]
  - Hepatotoxicity [Unknown]
  - Death [Fatal]
  - Ammonia increased [Fatal]
  - Partial seizures with secondary generalisation [Fatal]
  - Anticonvulsant drug level below therapeutic [Fatal]
  - Seizure [Fatal]
  - Hepatic encephalopathy [Recovered/Resolved]
  - Drug ineffective [Recovered/Resolved]
  - Partial seizures [Unknown]
  - Acute hepatic failure [Recovered/Resolved]
  - Somnolence [Recovering/Resolving]
  - Disease progression [Unknown]
  - Drug intolerance [Unknown]
  - Metabolic encephalopathy [Recovering/Resolving]
  - Partial seizures [Recovered/Resolved]
